FAERS Safety Report 24463075 (Version 1)
Quarter: 2024Q4

REPORT INFORMATION
  Report Type: Report from Study
  Country: US (occurrence: US)
  Receive Date: 20241018
  Receipt Date: 20241018
  Transmission Date: 20250114
  Serious: Yes (Death)
  Sender: BAYER HEALTHCARE PHARMACEUTICALS INC.
  Company Number: US-BAYER-2024A149034

PATIENT
  Age: 84 Year
  Sex: Female
  Weight: 80.726 kg

DRUGS (27)
  1. ADEMPAS [Suspect]
     Active Substance: RIOCIGUAT
     Indication: Pulmonary arterial hypertension
     Dosage: UNK
     Dates: start: 20220526
  2. ADEMPAS [Suspect]
     Active Substance: RIOCIGUAT
     Indication: Pulmonary arterial hypertension
     Dosage: 1 MG, TID
     Route: 048
  3. DOCUSATE SODIUM [Concomitant]
     Active Substance: DOCUSATE SODIUM
  4. MAGNESIUM [Concomitant]
     Active Substance: MAGNESIUM
  5. METHOCARBAMOL [Concomitant]
     Active Substance: METHOCARBAMOL
  6. OXYCODONE HYDROCHLORIDE [Concomitant]
     Active Substance: OXYCODONE HYDROCHLORIDE
  7. VITAMIN B COMPLEX [Concomitant]
     Active Substance: CYANOCOBALAMIN\DEXPANTHENOL\NIACINAMIDE\PYRIDOXINE HYDROCHLORIDE\RIBOFLAVIN 5^-PHOSPHATE SODIUM\THIA
  8. VITAMIN D3 [Concomitant]
     Active Substance: CHOLECALCIFEROL
  9. ESOMEPRAZOLE MAGNESIUM [Concomitant]
     Active Substance: ESOMEPRAZOLE MAGNESIUM
  10. LASIX [Concomitant]
     Active Substance: FUROSEMIDE
  11. AZELASTINE HYDROCHLORIDE [Concomitant]
     Active Substance: AZELASTINE HYDROCHLORIDE
  12. FLONASE ALLERGY RELIEF [Concomitant]
     Active Substance: FLUTICASONE PROPIONATE
  13. ALBUTEROL SULFATE [Concomitant]
     Active Substance: ALBUTEROL SULFATE
  14. LOSARTAN POTASSIUM [Concomitant]
     Active Substance: LOSARTAN POTASSIUM
  15. INCRUSE ELLIPTA [Concomitant]
     Active Substance: UMECLIDINIUM BROMIDE
  16. VITAMINS [Concomitant]
     Active Substance: VITAMINS
  17. FLUTICASONE PROPIONATE [Concomitant]
     Active Substance: FLUTICASONE PROPIONATE
  18. BIOTIN [Concomitant]
     Active Substance: BIOTIN
  19. LIDOCAINE [Concomitant]
     Active Substance: LIDOCAINE
  20. WARFARIN SODIUM [Concomitant]
     Active Substance: WARFARIN SODIUM
  21. CARVEDILOL [Concomitant]
     Active Substance: CARVEDILOL
  22. FAMOTIDINE [Concomitant]
     Active Substance: FAMOTIDINE
  23. PROGESTERONE [Concomitant]
     Active Substance: PROGESTERONE
  24. FLOVENT HFA [Concomitant]
     Active Substance: FLUTICASONE PROPIONATE
  25. SOTALOL [Concomitant]
     Active Substance: SOTALOL\SOTALOL HYDROCHLORIDE
  26. FINASTERIDE [Concomitant]
     Active Substance: FINASTERIDE
  27. POTASSIUM CHLORIDE [Concomitant]
     Active Substance: POTASSIUM CHLORIDE

REACTIONS (1)
  - Death [Fatal]

NARRATIVE: CASE EVENT DATE: 20240925
